FAERS Safety Report 18838345 (Version 2)
Quarter: 2021Q1

REPORT INFORMATION
  Report Type: Report from Study
  Country: JP (occurrence: JP)
  Receive Date: 20210203
  Receipt Date: 20210209
  Transmission Date: 20210419
  Serious: Yes (Hospitalization)
  Sender: FDA-Public Use
  Company Number: JP-ROCHE-2759286

PATIENT
  Age: 60 Year
  Sex: Male
  Weight: 61 kg

DRUGS (10)
  1. ELPLAT [Suspect]
     Active Substance: OXALIPLATIN
     Indication: COLON CANCER
     Dosage: DAY1
     Route: 041
     Dates: start: 20200928, end: 20210121
  2. IRINOTECAN HYDROCHLORIDE HYDRATE [Suspect]
     Active Substance: IRINOTECAN HYDROCHLORIDE
     Indication: COLON CANCER
     Dosage: DAY1
     Route: 041
     Dates: start: 20200928, end: 20210121
  3. CIPROXAN [Concomitant]
     Active Substance: CIPROFLOXACIN
     Indication: PYREXIA
     Dosage: AT FOR THE TON AND THE THERMACOGENESIS
     Route: 048
     Dates: start: 20200928
  4. CAPECITABINE. [Suspect]
     Active Substance: CAPECITABINE
     Indication: COLON CANCER
     Dosage: DAY1?15
     Route: 048
     Dates: start: 20200928, end: 20210121
  5. PRIMPERAN [Concomitant]
     Active Substance: METOCLOPRAMIDE HYDROCHLORIDE
     Indication: NAUSEA
     Dosage: THE FIFTH THREE TIMES A DAY AT THE VOMITURITION
     Route: 048
     Dates: start: 20200928
  6. LOPERAMIDE HYDROCHLORIDE. [Concomitant]
     Active Substance: LOPERAMIDE HYDROCHLORIDE
     Indication: DIARRHOEA
     Dosage: AT FOR THE TON AND THE DIARRHOEA
     Route: 048
     Dates: start: 20200928
  7. LOXONIN [Concomitant]
     Active Substance: LOXOPROFEN SODIUM
     Indication: PYREXIA
     Dosage: AS REQUIRED, AT FOR THE TON AND THE THERMACOGENESIS
     Route: 048
     Dates: start: 20200928
  8. MUCOSTA [Concomitant]
     Active Substance: REBAMIPIDE
     Indication: PYREXIA
     Dosage: AS REQUIRED, AT FOR THE TON AND THE THERMACOGENESIS
     Route: 048
     Dates: start: 20200928
  9. DECADRON [Concomitant]
     Active Substance: DEXAMETHASONE
     Indication: INFECTION PROPHYLAXIS
     Route: 048
     Dates: start: 20201126
  10. BEVACIZUMAB. [Suspect]
     Active Substance: BEVACIZUMAB
     Indication: COLON CANCER
     Route: 041
     Dates: start: 20200928, end: 20210121

REACTIONS (2)
  - Gastrointestinal perforation [Not Recovered/Not Resolved]
  - Abdominal abscess [Not Recovered/Not Resolved]

NARRATIVE: CASE EVENT DATE: 20210118
